FAERS Safety Report 14079822 (Version 5)
Quarter: 2017Q4

REPORT INFORMATION
  Report Type: Spontaneous
  Country: FR (occurrence: FR)
  Receive Date: 20171012
  Receipt Date: 20171210
  Transmission Date: 20180321
  Serious: Yes (Death, Hospitalization, Other)
  Sender: FDA-Public Use
  Company Number: PHHY2017FR147977

PATIENT
  Age: 64 Year
  Sex: Female
  Weight: 45.2 kg

DRUGS (10)
  1. FUROSEMIDE. [Concomitant]
     Active Substance: FUROSEMIDE
     Indication: HYPERTENSION
     Dosage: 20 OT, UNK
     Route: 065
     Dates: start: 20171003
  2. NEBIVOLOL. [Concomitant]
     Active Substance: NEBIVOLOL
     Indication: HYPERTENSION
     Dosage: UNK
     Route: 065
     Dates: start: 20171003
  3. PANTOPRAZOLE [Concomitant]
     Active Substance: PANTOPRAZOLE
     Indication: PRODUCT USED FOR UNKNOWN INDICATION
     Dosage: 20 OT, UNK
     Route: 065
     Dates: start: 20171003
  4. ACUPAN [Concomitant]
     Active Substance: NEFOPAM HYDROCHLORIDE
     Indication: PRODUCT USED FOR UNKNOWN INDICATION
     Dosage: UNK
     Route: 065
     Dates: start: 20171003
  5. DOLIPRANE [Concomitant]
     Active Substance: ACETAMINOPHEN
     Indication: PRODUCT USED FOR UNKNOWN INDICATION
     Dosage: UNK
     Route: 065
     Dates: start: 20171003
  6. COSENTYX [Suspect]
     Active Substance: SECUKINUMAB
     Dosage: 1 DF, QMO
     Route: 058
     Dates: start: 201610, end: 20170918
  7. COAPROVEL [Concomitant]
     Active Substance: HYDROCHLOROTHIAZIDE\IRBESARTAN
     Indication: HYPERTENSION
     Dosage: UNK
     Route: 065
  8. CORTANCYL [Concomitant]
     Active Substance: PREDNISONE
     Indication: PSORIASIS
     Dosage: 15 MG, QD
     Route: 065
  9. COSENTYX [Suspect]
     Active Substance: SECUKINUMAB
     Indication: PSORIATIC ARTHROPATHY
     Dosage: 1 DF, QMO
     Route: 058
     Dates: start: 201608
  10. OXYNORM [Concomitant]
     Active Substance: OXYCODONE HYDROCHLORIDE
     Indication: PSORIASIS
     Dosage: 15 MG, QD4SDO
     Route: 065

REACTIONS (28)
  - Abdominal pain [Fatal]
  - Gastrointestinal wall thickening [Unknown]
  - Malnutrition [Unknown]
  - Decreased appetite [Unknown]
  - Malabsorption [Unknown]
  - Hypoalbuminaemia [Unknown]
  - Chest discomfort [Unknown]
  - Myocardial infarction [Fatal]
  - Diarrhoea [Fatal]
  - Thoracic vertebral fracture [Unknown]
  - Fatigue [Unknown]
  - Mucous membrane disorder [Unknown]
  - Crohn^s disease [Fatal]
  - Pancreatitis [Unknown]
  - Lipase increased [Unknown]
  - Dehydration [Unknown]
  - Colitis ulcerative [Fatal]
  - Cachexia [Unknown]
  - Microcytic anaemia [Unknown]
  - Oedema peripheral [Unknown]
  - Lumbar vertebral fracture [Unknown]
  - Thrombocytosis [Unknown]
  - Pyrexia [Unknown]
  - Weight decreased [Fatal]
  - Fall [Unknown]
  - Nausea [Unknown]
  - Confusional state [Unknown]
  - Vitamin D deficiency [Unknown]

NARRATIVE: CASE EVENT DATE: 20161005
